FAERS Safety Report 9512033 (Version 1)
Quarter: 2013Q3

REPORT INFORMATION
  Report Type: Spontaneous
  Country: DE (occurrence: None)
  Receive Date: 20130906
  Receipt Date: 20130906
  Transmission Date: 20140515
  Serious: Yes (Other)
  Sender: FDA-Public Use
  Company Number: SYM-2013-10283

PATIENT
  Age: 46 Year
  Sex: Male

DRUGS (6)
  1. FLUOROURACIL [Suspect]
     Indication: BLADDER CANCER
     Dates: start: 201006, end: 201101
  2. FLUOROURACIL [Suspect]
     Indication: OFF LABEL USE
     Dates: start: 201006, end: 201101
  3. OXALIPLATIN [Suspect]
     Indication: BLADDER CANCER
     Dates: start: 201006, end: 201101
  4. OXALIPLATIN [Suspect]
     Indication: OFF LABEL USE
     Dates: start: 201006, end: 201101
  5. LEUCOVORIN (FOLINIC ACID) [Suspect]
     Indication: BLADDER CANCER
     Dates: start: 201006, end: 201101
  6. IRINOTECAN [Suspect]
     Indication: BLADDER CANCER
     Dates: start: 201006, end: 201101

REACTIONS (2)
  - Polyneuropathy [None]
  - Rash [None]
